FAERS Safety Report 8213516-7 (Version None)
Quarter: 2012Q1

REPORT INFORMATION
  Report Type: 
  Country: None (occurrence: None)
  Receive Date: 20120315
  Receipt Date: 20120306
  Transmission Date: 20120608
  Serious: Yes (Other)
  Sender: FDA-Public Use
  Company Number: US-BAUSCH-2012BL000685

PATIENT
  Age: 47 Year
  Sex: Male

DRUGS (6)
  1. BACITRACIN ZINC [Concomitant]
  2. ATROPINE [Concomitant]
  3. DORZOLAMIDE [Concomitant]
  4. VIGAMOX [Concomitant]
  5. NEOMYCIN, POLYMYXIN B SULFATE + DEXAMETHASONE [Suspect]
     Indication: EYE INFECTION
     Route: 047
     Dates: start: 20100325
  6. NEOMYCIN, POLYMYXIN B SULFATE + DEXAMETHASONE [Suspect]
     Route: 047
     Dates: start: 20100325

REACTIONS (4)
  - IRIDODONESIS [None]
  - RETINAL DEGENERATION [None]
  - ENDOPHTHALMITIS [None]
  - BLEPHARITIS [None]
